FAERS Safety Report 12891248 (Version 1)
Quarter: 2016Q4

REPORT INFORMATION
  Report Type: Report from Study
  Country: MU (occurrence: MU)
  Receive Date: 20161027
  Receipt Date: 20161027
  Transmission Date: 20170207
  Serious: Yes (Death, Other)
  Sender: FDA-Public Use
  Company Number: PHHY2016MU148341

PATIENT
  Sex: Female

DRUGS (1)
  1. GLIVEC [Suspect]
     Active Substance: IMATINIB MESYLATE
     Indication: CHRONIC MYELOID LEUKAEMIA
     Dosage: 800 MG, UNK
     Route: 065

REACTIONS (2)
  - Cerebrovascular accident [Fatal]
  - Chronic myeloid leukaemia [Unknown]
